FAERS Safety Report 4888036-8 (Version None)
Quarter: 2006Q1

REPORT INFORMATION
  Report Type: 
  Country: None (occurrence: None)
  Receive Date: 20060123
  Receipt Date: 20051005
  Transmission Date: 20060701
  Serious: Yes (Hospitalization, Other)
  Sender: FDA-Public Use
  Company Number: US-MERCK-0510USA03377

PATIENT
  Age: 59 Year
  Sex: Female
  Weight: 70 kg

DRUGS (3)
  1. VIOXX [Suspect]
     Indication: SHOULDER PAIN
     Route: 048
     Dates: start: 20040201, end: 20040401
  2. PROPOXYPHENE HYDROCHLORIDE [Concomitant]
     Route: 065
  3. NORVASC [Concomitant]
     Route: 065

REACTIONS (5)
  - CEREBROVASCULAR ACCIDENT [None]
  - DEHYDRATION [None]
  - DEPRESSION [None]
  - HYPERTENSION [None]
  - VISION BLURRED [None]
